FAERS Safety Report 10530454 (Version 1)
Quarter: 2014Q4

REPORT INFORMATION
  Report Type: Spontaneous
  Country: US (occurrence: None)
  Receive Date: 20141020
  Receipt Date: 20141020
  Transmission Date: 20150528
  Serious: No
  Sender: FDA-Public Use
  Company Number: None

PATIENT

DRUGS (2)
  1. PAROXETINE HCL [Suspect]
     Active Substance: PAROXETINE HYDROCHLORIDE
     Indication: MIGRAINE PROPHYLAXIS
     Route: 048
     Dates: start: 19990723, end: 20140909
  2. SLEEP APNEA MASK [Concomitant]

REACTIONS (17)
  - Alopecia [None]
  - Syncope [None]
  - Tooth fracture [None]
  - Nausea [None]
  - Hair texture abnormal [None]
  - Hypoacusis [None]
  - Insomnia [None]
  - Disturbance in attention [None]
  - Nightmare [None]
  - Pain in jaw [None]
  - Withdrawal syndrome [None]
  - Anger [None]
  - Malaise [None]
  - Impaired driving ability [None]
  - Irritability [None]
  - Chills [None]
  - Dyspnoea [None]
